FAERS Safety Report 12420425 (Version 1)
Quarter: 2016Q2

REPORT INFORMATION
  Report Type: Report from Study
  Country: ES (occurrence: ES)
  Receive Date: 20160531
  Receipt Date: 20160531
  Transmission Date: 20160815
  Serious: Yes (Other)
  Sender: FDA-Public Use
  Company Number: ES-JNJFOC-20131014634

PATIENT

DRUGS (4)
  1. TRABECTEDIN [Suspect]
     Active Substance: TRABECTEDIN
     Indication: SARCOMATOSIS
     Route: 042
  2. DOXORUBICIN [Suspect]
     Active Substance: DOXORUBICIN
     Indication: SARCOMA METASTATIC
     Dosage: 60 MG/M2 IF TAKING TRABECTEDIN, OR 75 MG/M2 IF NO TRABECTEDIN ADMINISTERED.
     Route: 065
  3. DOXORUBICIN [Suspect]
     Active Substance: DOXORUBICIN
     Indication: SARCOMATOSIS
     Dosage: 60 MG/M2 IF TAKING TRABECTEDIN, OR 75 MG/M2 IF NO TRABECTEDIN ADMINISTERED.
     Route: 065
  4. TRABECTEDIN [Suspect]
     Active Substance: TRABECTEDIN
     Indication: SARCOMA METASTATIC
     Route: 042

REACTIONS (14)
  - Stomatitis [Unknown]
  - Anaemia [Unknown]
  - Cardiotoxicity [Unknown]
  - Asthenia [Unknown]
  - Alanine aminotransferase abnormal [Unknown]
  - Thrombocytopenia [Unknown]
  - Blood bilirubin increased [Unknown]
  - Neutropenia [Unknown]
  - Nausea [Unknown]
  - Diarrhoea [Unknown]
  - Aspartate aminotransferase abnormal [Unknown]
  - Vomiting [Unknown]
  - Febrile neutropenia [Unknown]
  - Constipation [Unknown]
